FAERS Safety Report 5491108-0 (Version None)
Quarter: 2007Q4

REPORT INFORMATION
  Report Type: 
  Country: None (occurrence: None)
  Receive Date: 20071019
  Receipt Date: 20071009
  Transmission Date: 20080405
  Serious: Yes (Other)
  Sender: FDA-Public Use
  Company Number: US-PFIZER INC-2007068330

PATIENT
  Sex: Female
  Weight: 81.6 kg

DRUGS (8)
  1. LYRICA [Suspect]
     Indication: DIABETIC NEUROPATHY
  2. COZAAR [Concomitant]
  3. ACETYLSALICYLIC ACID [Concomitant]
  4. LOPRESSOR [Concomitant]
  5. DYAZIDE [Concomitant]
  6. VYTORIN [Concomitant]
  7. NITROGLYCERIN [Concomitant]
  8. BYETTA [Concomitant]

REACTIONS (2)
  - DIABETES MELLITUS [None]
  - DRUG INEFFECTIVE [None]
